FAERS Safety Report 8819867 (Version 1)
Quarter: 2012Q4

REPORT INFORMATION
  Report Type: 
  Country: US (occurrence: US)
  Receive Date: 20121001
  Receipt Date: 20121001
  Transmission Date: 20130627
  Serious: Yes (Death, Other)
  Sender: FDA-Public Use
  Company Number: US-ROCHE-1129671

PATIENT
  Sex: Female
  Weight: 45 kg

DRUGS (10)
  1. HERCEPTIN [Suspect]
     Indication: NON-SMALL CELL LUNG CANCER
     Route: 042
     Dates: start: 19981112
  2. HERCEPTIN [Suspect]
     Route: 065
  3. TAXOL [Suspect]
     Indication: PRODUCT USED FOR UNKNOWN INDICATION
     Route: 042
  4. BENADRYL [Concomitant]
     Route: 042
  5. DECADRON [Concomitant]
     Route: 042
  6. COMPAZINE SR [Concomitant]
     Route: 065
  7. TAGAMET [Concomitant]
     Route: 042
  8. DEXAMETHASONE [Concomitant]
     Route: 065
  9. COUMADIN [Concomitant]
     Route: 065
  10. LASIX [Concomitant]
     Route: 065

REACTIONS (6)
  - Death [Fatal]
  - Metastases to central nervous system [Unknown]
  - General physical health deterioration [Unknown]
  - Alopecia [Unknown]
  - Neuropathy peripheral [Unknown]
  - Muscular weakness [Unknown]
